FAERS Safety Report 9407211 (Version 1)
Quarter: 2013Q3

REPORT INFORMATION
  Report Type: Spontaneous
  Country: ES (occurrence: None)
  Receive Date: 20130716
  Receipt Date: 20130716
  Transmission Date: 20140515
  Serious: Yes (Hospitalization)
  Sender: FDA-Public Use
  Company Number: SYM-2013-06682

PATIENT
  Age: 56 Year
  Sex: Female

DRUGS (3)
  1. FLUOROURACIL (FLUOROURACIL) (FLUOROURACIL) [Suspect]
     Indication: BREAST CANCER
     Dosage: INTRAVENOUS (NOT OTHERWISE SPECIFIED)?
     Route: 042
     Dates: start: 20010611, end: 20011011
  2. DOXORUBICIN (DOXORUBICIN) (DOXORUBICIN) [Suspect]
     Indication: BREAST CANCER
     Dosage: INTRAVENOUS (NOT OTHERWISE SPECIFIED)?
     Route: 042
     Dates: start: 20010611, end: 20011011
  3. CYCLOPHOSPHAMIDE [Suspect]
     Indication: BREAST CANCER
     Dosage: INTRAVENOUS (NOT OTHERWISE SPECIFIED)?
     Route: 042
     Dates: start: 20010611, end: 20011011

REACTIONS (4)
  - Thrombocytopenia [None]
  - Neutropenia [None]
  - Anaemia [None]
  - Febrile neutropenia [None]
